FAERS Safety Report 5315334-6 (Version None)
Quarter: 2007Q2

REPORT INFORMATION
  Report Type: 
  Country: None (occurrence: None)
  Receive Date: 20070502
  Receipt Date: 20070425
  Transmission Date: 20071010
  Serious: Yes (Other)
  Sender: FDA-Public Use
  Company Number: US-PFIZER INC-2007034246

PATIENT
  Sex: Female
  Weight: 70.454 kg

DRUGS (6)
  1. DETROL LA [Suspect]
     Indication: POLLAKIURIA
     Dates: start: 20070424, end: 20070425
  2. PLAVIX [Concomitant]
  3. DIGITEK [Concomitant]
  4. LASIX [Concomitant]
  5. FERROUS SULFATE TAB [Concomitant]
  6. SPIRIVA [Concomitant]

REACTIONS (2)
  - DYSPHAGIA [None]
  - PHARYNGEAL OEDEMA [None]
